FAERS Safety Report 10163935 (Version 1)
Quarter: 2014Q2

REPORT INFORMATION
  Report Type: Spontaneous
  Country: US (occurrence: US)
  Receive Date: 20140510
  Receipt Date: 20140510
  Transmission Date: 20141212
  Serious: No
  Sender: FDA-Public Use
  Company Number: US-BRISTOL-MYERS SQUIBB COMPANY-19643121

PATIENT
  Age: 61 Year
  Sex: Female
  Weight: 108.84 kg

DRUGS (3)
  1. BYETTA [Suspect]
     Dosage: INCREASED TO 10MCG
  2. INSULIN [Concomitant]
  3. VICTOZA [Concomitant]

REACTIONS (2)
  - Nausea [Unknown]
  - Vomiting [Unknown]
